FAERS Safety Report 7503251-2 (Version None)
Quarter: 2011Q2

REPORT INFORMATION
  Report Type: 
  Country: None (occurrence: None)
  Receive Date: 20110525
  Receipt Date: 20100820
  Transmission Date: 20111010
  Serious: No
  Sender: FDA-Public Use
  Company Number: A0876988A

PATIENT
  Age: 23 Month
  Sex: Male

DRUGS (1)
  1. BACTROBAN [Suspect]
     Indication: SKIN INFECTION
     Dosage: 1APP PER DAY
     Route: 061
     Dates: start: 20100810, end: 20100811

REACTIONS (3)
  - SCREAMING [None]
  - JOINT SWELLING [None]
  - ERYTHEMA [None]
